FAERS Safety Report 5164769-3 (Version None)
Quarter: 2006Q4

REPORT INFORMATION
  Report Type: 
  Country: None (occurrence: None)
  Receive Date: 20061205
  Receipt Date: 20061129
  Transmission Date: 20070319
  Serious: Yes (Other)
  Sender: FDA-Public Use
  Company Number: BE-GLAXOSMITHKLINE-B0449247A

PATIENT
  Sex: Female

DRUGS (3)
  1. LAMOTRIGINE [Suspect]
     Indication: BIPOLAR DISORDER
  2. ALPRAZOLAM [Suspect]
     Indication: BIPOLAR DISORDER
  3. TAMOXIFEN CITRATE [Concomitant]
     Indication: BREAST CANCER

REACTIONS (4)
  - HYPOMANIA [None]
  - PSYCHOMOTOR HYPERACTIVITY [None]
  - SLEEP DISORDER [None]
  - TENSION [None]
